FAERS Safety Report 16073574 (Version 1)
Quarter: 2019Q1

REPORT INFORMATION
  Report Type: Report from Study
  Country: ZA (occurrence: ZA)
  Receive Date: 20190314
  Receipt Date: 20190314
  Transmission Date: 20190418
  Serious: Yes (Life-Threatening, Disabling)
  Sender: FDA-Public Use
  Company Number: ZA-SAKK-2018SA286226AA

PATIENT
  Age: 48 Year
  Sex: Male

DRUGS (9)
  1. EXFORGE [Concomitant]
     Active Substance: AMLODIPINE BESYLATE\VALSARTAN
     Dosage: 160 MG BEFORE BREAKFAST, QD
     Route: 065
     Dates: start: 20181012
  2. GLUCOPHAGE [Concomitant]
     Active Substance: METFORMIN HYDROCHLORIDE
     Dosage: 1000 MG (BEFORE BREAKFAST, BEFORE SUPPER), BID
     Route: 065
     Dates: start: 20181012
  3. TREPILINE [AMITRIPTYLINE] [Concomitant]
     Active Substance: AMITRIPTYLINE
     Dosage: 10 MG BED TIME
     Route: 065
     Dates: start: 20181012
  4. TOUJEO [Suspect]
     Active Substance: INSULIN GLARGINE
     Dosage: 110 U, QD
     Dates: start: 20181010
  5. INSULIN GLULISINE [Suspect]
     Active Substance: INSULIN GLULISINE
     Dosage: BS-36 UNITS, BL-36 UNITS, BB-38 UNITS
     Dates: start: 20081012
  6. DISPRIN CARDIOCARE [Concomitant]
     Active Substance: ASPIRIN
     Dosage: 100 MG BEFORE BREAKFAST, QD
     Route: 065
     Dates: start: 20181015
  7. INSULIN GLULISINE [Suspect]
     Active Substance: INSULIN GLULISINE
     Indication: TYPE 2 DIABETES MELLITUS
     Dosage: BB-32 UNITS | BS-32 UNITS | BL-32 UN TID
     Dates: start: 20081012
  8. TOUJEO [Suspect]
     Active Substance: INSULIN GLARGINE
     Indication: TYPE 2 DIABETES MELLITUS
     Dosage: UNK
     Dates: start: 20180901
  9. NEXMEZOL [Concomitant]
     Active Substance: ESOMEPRAZOLE MAGNESIUM
     Dosage: 20 MG BEFORE SUPPER, QD
     Route: 065
     Dates: start: 20181012

REACTIONS (5)
  - Dry mouth [Recovered/Resolved]
  - Hyperglycaemia [Not Recovered/Not Resolved]
  - Glycosylated haemoglobin increased [Unknown]
  - Unevaluable event [Not Recovered/Not Resolved]
  - Skin ulcer [Not Recovered/Not Resolved]

NARRATIVE: CASE EVENT DATE: 20181010
